FAERS Safety Report 14940711 (Version 7)
Quarter: 2018Q4

REPORT INFORMATION
  Report Type: Report from Study
  Country: GB (occurrence: GB)
  Receive Date: 20180525
  Receipt Date: 20181016
  Transmission Date: 20190204
  Serious: Yes (Hospitalization, Other)
  Sender: FDA-Public Use
  Company Number: GB-BRISTOL-MYERS SQUIBB COMPANY-BMS-2018-040342

PATIENT
  Age: 64 Year
  Sex: Male

DRUGS (1)
  1. ABATACEPT [Suspect]
     Active Substance: ABATACEPT
     Indication: RHEUMATOID ARTHRITIS
     Dosage: 125 MG, QWK
     Route: 058
     Dates: start: 2017

REACTIONS (11)
  - Malaise [Unknown]
  - Cellulitis [Recovered/Resolved]
  - Limb discomfort [Unknown]
  - Dyspnoea [Unknown]
  - Joint swelling [Unknown]
  - Contusion [Unknown]
  - Sepsis [Unknown]
  - Lower respiratory tract infection [Unknown]
  - Type 2 diabetes mellitus [Unknown]
  - Infection [Unknown]
  - Influenza [Unknown]

NARRATIVE: CASE EVENT DATE: 201804
